FAERS Safety Report 4590472-4 (Version None)
Quarter: 2005Q1

REPORT INFORMATION
  Report Type: 
  Country: None (occurrence: None)
  Receive Date: 20050224
  Receipt Date: 20050214
  Transmission Date: 20050727
  Serious: Yes (Other)
  Sender: FDA-Public Use
  Company Number: US-BRISTOL-MYERS SQUIBB COMPANY-12860797

PATIENT
  Age: 39 Year
  Sex: Male

DRUGS (1)
  1. MITOMYCIN [Suspect]
     Indication: CORNEAL OPACITY
     Dosage: 07-08-MAY-1999,1GTT QID; 09-MAY-1999, NO DROPS DUE TO SEVERE IRRITATION;10-11-12-MAY-1999 1GTT BID
     Route: 047
     Dates: start: 19990507, end: 19990512

REACTIONS (1)
  - CORNEAL OEDEMA [None]
